FAERS Safety Report 5015694-X (Version None)
Quarter: 2006Q2

REPORT INFORMATION
  Report Type: 
  Country: None (occurrence: None)
  Receive Date: 20060525
  Receipt Date: 20060515
  Transmission Date: 20061013
  Serious: Yes (Death)
  Sender: FDA-Public Use
  Company Number: 2006S1004400

PATIENT
  Age: 34 Year
  Sex: Male

DRUGS (14)
  1. CLOZAPINE [Suspect]
     Indication: SCHIZOPHRENIA, UNDIFFERENTIATED TYPE
     Dosage: 25 MG; QD; PO
     Route: 048
     Dates: start: 20060413, end: 20060430
  2. QUETIAPINE FUMARATE [Concomitant]
  3. POTASSIUM CHLORIDE [Concomitant]
  4. FAMOTIDINE [Concomitant]
  5. INSULIN GLARGINE [Concomitant]
  6. CLONIDINE [Concomitant]
  7. VALPROATE SODIUM [Concomitant]
  8. BENZTROPINE MESYLATE [Concomitant]
  9. AMOXICILLIN [Concomitant]
  10. NATEGLINIDE [Concomitant]
  11. TRIAMTERENE AND HYDROCHLOROTHIAZIDE [Concomitant]
  12. AMLODIPINE/BENAZEPRIL HYDROCHLORIDE [Concomitant]
  13. METFORMIN [Concomitant]
  14. PERPHENAZINE [Concomitant]

REACTIONS (1)
  - SUBDURAL HAEMATOMA [None]
